FAERS Safety Report 12294333 (Version 2)
Quarter: 2016Q2

REPORT INFORMATION
  Report Type: Spontaneous
  Country: IN (occurrence: IN)
  Receive Date: 20160422
  Receipt Date: 20160603
  Transmission Date: 20160815
  Serious: Yes (Other)
  Sender: FDA-Public Use
  Company Number: IN-SUN PHARMACEUTICAL INDUSTRIES LTD-2016R1-115195

PATIENT
  Age: 37 Year
  Sex: Male

DRUGS (3)
  1. LEUCOVORIN. [Suspect]
     Active Substance: LEUCOVORIN
     Indication: ADENOCARCINOMA OF COLON
     Dosage: 6 CYCLES OF 2 WEEKLY MFOLFOX4
     Route: 065
  2. OXALIPLATIN. [Suspect]
     Active Substance: OXALIPLATIN
     Indication: ADENOCARCINOMA OF COLON
     Dosage: 6 CYCLES OF 2 WEEKLY MFOLFOX4
     Route: 065
  3. FLUOROURACIL. [Suspect]
     Active Substance: FLUOROURACIL
     Indication: ADENOCARCINOMA OF COLON
     Dosage: 6 CYCLES OF 2 WEEKLY MFOLFOX4; 48 H INFUSION
     Route: 065

REACTIONS (6)
  - Drug intolerance [Recovered/Resolved]
  - Neurotoxicity [Not Recovered/Not Resolved]
  - Visual impairment [Recovered/Resolved]
  - Cerebellar atrophy [Not Recovered/Not Resolved]
  - Tetany [Recovered/Resolved]
  - Tardive dyskinesia [Recovered/Resolved]
